FAERS Safety Report 16329108 (Version 2)
Quarter: 2019Q2

REPORT INFORMATION
  Report Type: Spontaneous
  Country: US (occurrence: US)
  Receive Date: 20190519
  Receipt Date: 20190523
  Transmission Date: 20190711
  Serious: Yes (Hospitalization, Other)
  Sender: FDA-Public Use
  Company Number: US-PCCINC-2019-PEL-000136

PATIENT

DRUGS (1)
  1. GABLOFEN [Suspect]
     Active Substance: BACLOFEN
     Indication: MUSCLE SPASTICITY
     Dosage: 673.5 MICROGRAM PER DAY
     Route: 037

REACTIONS (6)
  - Cerebrovascular accident [Not Recovered/Not Resolved]
  - Malaise [Not Recovered/Not Resolved]
  - Pneumonia [Not Recovered/Not Resolved]
  - Hyponatraemic seizure [Not Recovered/Not Resolved]
  - Respiratory failure [Not Recovered/Not Resolved]
  - Device malfunction [Recovered/Resolved]

NARRATIVE: CASE EVENT DATE: 20190324
